FAERS Safety Report 16373262 (Version 6)
Quarter: 2019Q3

REPORT INFORMATION
  Report Type: Report from Study
  Country: US (occurrence: US)
  Receive Date: 20190530
  Receipt Date: 20190904
  Transmission Date: 20191004
  Serious: Yes (Hospitalization)
  Sender: FDA-Public Use
  Company Number: US-ACTELION-A-US2019-185819

PATIENT
  Age: 50 Year
  Sex: Female
  Weight: 58.5 kg

DRUGS (8)
  1. VELETRI [Suspect]
     Active Substance: EPOPROSTENOL
     Dosage: 19 NG/KG, PER MIN
     Route: 042
     Dates: start: 20190113
  2. VELETRI [Suspect]
     Active Substance: EPOPROSTENOL
     Dosage: 21 UNK
     Route: 042
  3. VELETRI [Suspect]
     Active Substance: EPOPROSTENOL
     Indication: PULMONARY ARTERIAL HYPERTENSION
     Dosage: 23 NG/KG, PER MIN
     Route: 042
  4. LETAIRIS [Suspect]
     Active Substance: AMBRISENTAN
     Indication: PRODUCT USED FOR UNKNOWN INDICATION
     Route: 065
  5. VELETRI [Suspect]
     Active Substance: EPOPROSTENOL
     Dosage: 18 NG/KG, PER MIN
     Route: 042
  6. VELETRI [Suspect]
     Active Substance: EPOPROSTENOL
     Dosage: 22 NG/KG, PER MIN
     Route: 042
  7. TADALAFIL. [Suspect]
     Active Substance: TADALAFIL
     Indication: PULMONARY HYPERTENSION
     Dosage: 10 MG, QD
     Route: 048
     Dates: start: 20190311, end: 20190319
  8. VELETRI [Suspect]
     Active Substance: EPOPROSTENOL
     Dosage: 17 NG/KG, PER MIN
     Route: 042

REACTIONS (32)
  - Fluid retention [Not Recovered/Not Resolved]
  - Decreased appetite [Unknown]
  - Catheter site rash [Unknown]
  - Diarrhoea [Recovered/Resolved]
  - Back pain [Unknown]
  - Weight decreased [Unknown]
  - Abdominal pain lower [Unknown]
  - Infection [Unknown]
  - Fluid overload [Not Recovered/Not Resolved]
  - Myalgia [Unknown]
  - Fatigue [Unknown]
  - Chest pain [Unknown]
  - Haematochezia [Unknown]
  - Catheter site erythema [Unknown]
  - Catheter site irritation [Recovering/Resolving]
  - Surgery [Unknown]
  - Pain in jaw [Not Recovered/Not Resolved]
  - Muscle spasms [Unknown]
  - Pain in extremity [Unknown]
  - Constipation [Unknown]
  - Hospitalisation [Unknown]
  - Nausea [Not Recovered/Not Resolved]
  - Headache [Not Recovered/Not Resolved]
  - Flushing [Unknown]
  - Urine odour abnormal [Unknown]
  - Dyspnoea exertional [Unknown]
  - Arthralgia [Unknown]
  - Chromaturia [Unknown]
  - Musculoskeletal pain [Unknown]
  - Dyspnoea [Recovering/Resolving]
  - Catheter site pruritus [Unknown]
  - Vomiting [Not Recovered/Not Resolved]

NARRATIVE: CASE EVENT DATE: 20190204
